FAERS Safety Report 14283326 (Version 1)
Quarter: 2017Q4

REPORT INFORMATION
  Report Type: Not Available
  Country: US (occurrence: US)
  Receive Date: 20171213
  Receipt Date: 20171213
  Transmission Date: 20180321
  Serious: Yes (Death)
  Sender: FDA-Public Use
  Company Number: US-NEUROCRINE BIOSCIENCES INC.-2017NBI01797

PATIENT
  Age: 74 Year
  Sex: Female

DRUGS (16)
  1. KLONOPIN [Concomitant]
     Active Substance: CLONAZEPAM
  2. COGENTIN [Concomitant]
     Active Substance: BENZTROPINE MESYLATE
  3. DEPAKOTE ER [Concomitant]
     Active Substance: DIVALPROEX SODIUM
  4. INGREZZA [Suspect]
     Active Substance: VALBENAZINE
     Indication: PRODUCT USED FOR UNKNOWN INDICATION
     Route: 048
     Dates: start: 20170824, end: 201711
  5. SYNTHROID [Concomitant]
     Active Substance: LEVOTHYROXINE SODIUM
  6. FISH OIL [Concomitant]
     Active Substance: FISH OIL
  7. KEPPRA [Concomitant]
     Active Substance: LEVETIRACETAM
  8. ARICEPT [Concomitant]
     Active Substance: DONEPEZIL HYDROCHLORIDE
  9. HYDROCHLOROTHIAZIDE. [Concomitant]
     Active Substance: HYDROCHLOROTHIAZIDE
  10. MULTIVITAMIN [Concomitant]
     Active Substance: VITAMINS
  11. SEROQUEL [Concomitant]
     Active Substance: QUETIAPINE FUMARATE
  12. ALEVE [Concomitant]
     Active Substance: NAPROXEN SODIUM
  13. COLACE [Concomitant]
     Active Substance: DOCUSATE SODIUM
  14. PEPCID [Concomitant]
     Active Substance: FAMOTIDINE
  15. MAGNESIUM [Concomitant]
     Active Substance: MAGNESIUM
  16. STALEVO [Concomitant]
     Active Substance: CARBIDOPA\ENTACAPONE\LEVODOPA

REACTIONS (1)
  - Death [Fatal]

NARRATIVE: CASE EVENT DATE: 201711
